FAERS Safety Report 8268446-1 (Version None)
Quarter: 2012Q2

REPORT INFORMATION
  Report Type: 
  Country: None (occurrence: None)
  Receive Date: 20120409
  Receipt Date: 20120330
  Transmission Date: 20120825
  Serious: Yes (Other)
  Sender: FDA-Public Use
  Company Number: US-BAYER-2012-031708

PATIENT
  Age: 63 Year
  Sex: Male
  Weight: 70 kg

DRUGS (9)
  1. METHOTREXATE [Concomitant]
  2. MULTI-VITAMIN [Concomitant]
  3. IBUPROFEN [Concomitant]
  4. PREDNISONE [Concomitant]
  5. PRILOSEC [Concomitant]
  6. ALEVE (CAPLET) [Suspect]
     Indication: ARTHRITIS
     Dosage: 2 DF, UNK
     Route: 048
     Dates: start: 19970101, end: 20120301
  7. ALEVE (CAPLET) [Suspect]
     Dosage: 2 DF, UNK
     Route: 048
     Dates: start: 20120301
  8. FOLIC ACID [Concomitant]
  9. CITRACAL [Concomitant]

REACTIONS (2)
  - HEAD DISCOMFORT [None]
  - LOCALISED OEDEMA [None]
